FAERS Safety Report 14971049 (Version 2)
Quarter: 2018Q2

REPORT INFORMATION
  Report Type: Report from Study
  Country: BR (occurrence: BR)
  Receive Date: 20180604
  Receipt Date: 20180615
  Transmission Date: 20180711
  Serious: Yes (Hospitalization, Other)
  Sender: FDA-Public Use
  Company Number: BR-EMD SERONO-E2B_90013508

PATIENT
  Age: 24 Year
  Sex: Female

DRUGS (3)
  1. REBIF [Suspect]
     Active Substance: INTERFERON BETA-1A
     Indication: MULTIPLE SCLEROSIS
     Dosage: UNSPECIFIED DOSE
     Dates: start: 20171211
  2. REBIF [Suspect]
     Active Substance: INTERFERON BETA-1A
     Dosage: TITRATING DOSE IN 50 PERCENT
     Dates: start: 20180329
  3. REBIF [Suspect]
     Active Substance: INTERFERON BETA-1A
     Route: 058
     Dates: start: 20180302

REACTIONS (9)
  - Injection site induration [Recovered/Resolved]
  - Injection site bruising [Unknown]
  - Multiple sclerosis relapse [Unknown]
  - Petechiae [Unknown]
  - Influenza like illness [Recovered/Resolved]
  - Injection site erythema [Recovered/Resolved]
  - Treatment failure [Unknown]
  - Haematoma [Recovered/Resolved]
  - Thrombocytopenia [Recovering/Resolving]

NARRATIVE: CASE EVENT DATE: 201712
